FAERS Safety Report 13997614 (Version 1)
Quarter: 2017Q3

REPORT INFORMATION
  Report Type: Spontaneous
  Country: JP (occurrence: JP)
  Receive Date: 20170921
  Receipt Date: 20170921
  Transmission Date: 20171128
  Serious: Yes (Other)
  Sender: FDA-Public Use
  Company Number: JP-TEVA-807119ROM

PATIENT
  Age: 8 Year
  Sex: Female

DRUGS (2)
  1. CYTARABINE. [Suspect]
     Active Substance: CYTARABINE
     Indication: HISTIOCYTIC SARCOMA
     Dosage: 1 G/M2/DOSE (OVER 2 H) FOR 10 DOSES OVER 5 CONSECUTIVE DAYS
     Route: 065
  2. CLADRIBINE. [Suspect]
     Active Substance: CLADRIBINE
     Indication: HISTIOCYTIC SARCOMA
     Dosage: 9 MG/M2/DAY GIVEN OVER 5 DAYS
     Route: 050

REACTIONS (5)
  - Off label use [Unknown]
  - Acute respiratory distress syndrome [Recovered/Resolved]
  - Febrile neutropenia [Unknown]
  - Streptococcal sepsis [Unknown]
  - Bone marrow failure [Unknown]
